FAERS Safety Report 7089115-X (Version None)
Quarter: 2010Q4

REPORT INFORMATION
  Report Type: 
  Country: None (occurrence: None)
  Receive Date: 20101029
  Receipt Date: 20101025
  Transmission Date: 20110411
  Serious: Yes (Other)
  Sender: FDA-Public Use
  Company Number: 734914

PATIENT
  Sex: Female
  Weight: 2.48 kg

DRUGS (13)
  1. CIPROFLAXACIN [Suspect]
     Indication: SEPSIS
     Dosage: 25 MG MILLIGRAM(S), 1 DAY, INTRAVENOUS
     Route: 042
     Dates: start: 20101012, end: 20101014
  2. DOPAMINE HYDROCHLORIDE [Concomitant]
  3. FLUCONAZOLE [Concomitant]
  4. (FUROSEMIDE) [Concomitant]
  5. GENTAMICIN [Concomitant]
  6. HYDROCORTISONE [Concomitant]
  7. MEROPENEM [Concomitant]
  8. (MIDAZOLAM) [Concomitant]
  9. MORPHINE SULFATE [Concomitant]
  10. PHYTONADIONE [Concomitant]
  11. RANITIDINE [Concomitant]
  12. SPIRONOLACTONE [Concomitant]
  13. VANCOMYCIN [Concomitant]

REACTIONS (1)
  - BRADYCARDIA [None]
